FAERS Safety Report 22349756 (Version 2)
Quarter: 2023Q2

REPORT INFORMATION
  Report Type: Spontaneous
  Country: JP (occurrence: JP)
  Receive Date: 20230522
  Receipt Date: 20230524
  Transmission Date: 20230722
  Serious: Yes (Other)
  Sender: FDA-Public Use
  Company Number: JP-MLMSERVICE-20230509-4277270-1

PATIENT
  Age: 5 Decade
  Sex: Female

DRUGS (4)
  1. EXEMESTANE [Suspect]
     Active Substance: EXEMESTANE
     Indication: Hormone therapy
     Dosage: UNK
  2. LETROZOLE [Suspect]
     Active Substance: LETROZOLE
     Indication: Hormone therapy
     Dosage: UNK
  3. TAMOXIFEN [Suspect]
     Active Substance: TAMOXIFEN
     Indication: Hormone therapy
     Dosage: UNK
  4. ANASTROZOLE [Suspect]
     Active Substance: ANASTROZOLE
     Indication: Hormone therapy
     Dosage: UNK

REACTIONS (2)
  - Cutaneous sarcoidosis [Recovering/Resolving]
  - Pulmonary sarcoidosis [Recovering/Resolving]
